FAERS Safety Report 6715137-1 (Version None)
Quarter: 2010Q2

REPORT INFORMATION
  Report Type: 
  Country: None (occurrence: None)
  Receive Date: 20100507
  Receipt Date: 20100428
  Transmission Date: 20101027
  Serious: Yes (Other)
  Sender: FDA-Public Use
  Company Number: GB-MILLENNIUM PHARMACEUTICALS, INC.-2010-02401

PATIENT

DRUGS (2)
  1. VELCADE [Suspect]
     Indication: MULTIPLE MYELOMA
     Dosage: 2.5 MG, UNK
     Route: 042
     Dates: start: 20100115, end: 20100419
  2. PREDNISOLONE [Concomitant]
     Indication: MULTIPLE MYELOMA
     Dosage: 100 MG, UNK
     Route: 048
     Dates: start: 20100115, end: 20100419

REACTIONS (4)
  - CONJUNCTIVITIS [None]
  - DYSPNOEA EXERTIONAL [None]
  - FATIGUE [None]
  - PERIORBITAL OEDEMA [None]
